FAERS Safety Report 8144885-4 (Version None)
Quarter: 2012Q1

REPORT INFORMATION
  Report Type: 
  Country: None (occurrence: None)
  Receive Date: 20120217
  Receipt Date: 20120207
  Transmission Date: 20120608
  Serious: Yes (Hospitalization, Other)
  Sender: FDA-Public Use
  Company Number: HR-GLAXOSMITHKLINE-B0778179A

PATIENT
  Age: 55 Year
  Sex: Female
  Weight: 50 kg

DRUGS (1)
  1. HYCAMTIN [Suspect]
     Indication: OVARIAN CANCER
     Route: 065

REACTIONS (12)
  - LYMPHOEDEMA [None]
  - SCAB [None]
  - RASH [None]
  - SKIN OEDEMA [None]
  - HYPERSENSITIVITY [None]
  - URTICARIA [None]
  - BLINDNESS [None]
  - EYE SWELLING [None]
  - EYELID OEDEMA [None]
  - ERYTHEMA [None]
  - FACE OEDEMA [None]
  - LOCALISED OEDEMA [None]
